FAERS Safety Report 14597596 (Version 2)
Quarter: 2018Q2

REPORT INFORMATION
  Report Type: Spontaneous
  Country: GB (occurrence: GB)
  Receive Date: 20180305
  Receipt Date: 20180607
  Transmission Date: 20180711
  Serious: Yes (Death, Life-Threatening, Hospitalization)
  Sender: FDA-Public Use
  Company Number: GB-VELOXIS PHARMACEUTICALS-2042955

PATIENT
  Age: 6 Year
  Sex: Female
  Weight: 14 kg

DRUGS (2)
  1. MYCOPHENOLATE MOFETIL. [Suspect]
     Active Substance: MYCOPHENOLATE MOFETIL
     Indication: RENAL TRANSPLANT
     Dosage: UNK
     Route: 065
  2. TACROLIMUS. [Suspect]
     Active Substance: TACROLIMUS
     Indication: RENAL TRANSPLANT
     Dosage: UNK
     Route: 065

REACTIONS (4)
  - Sepsis [Fatal]
  - Abdominal pain [Recovered/Resolved]
  - Device related infection [Not Recovered/Not Resolved]
  - Intentional product use issue [Unknown]
